FAERS Safety Report 19846944 (Version 7)
Quarter: 2021Q4

REPORT INFORMATION
  Report Type: Report from Study
  Country: US (occurrence: US)
  Receive Date: 20210917
  Receipt Date: 20211223
  Transmission Date: 20220304
  Serious: No
  Sender: FDA-Public Use
  Company Number: NVSC2021US210946

PATIENT
  Age: 47 Year
  Sex: Female

DRUGS (2)
  1. KESIMPTA [Suspect]
     Active Substance: OFATUMUMAB
     Indication: Multiple sclerosis
     Dosage: 20 MG, QW
     Route: 058
     Dates: start: 20210914
  2. KESIMPTA [Suspect]
     Active Substance: OFATUMUMAB
     Dosage: UNK
     Route: 065

REACTIONS (22)
  - Influenza like illness [Not Recovered/Not Resolved]
  - Illness [Not Recovered/Not Resolved]
  - Fatigue [Not Recovered/Not Resolved]
  - Pain [Not Recovered/Not Resolved]
  - Pyrexia [Unknown]
  - Headache [Unknown]
  - Blister [Not Recovered/Not Resolved]
  - Retching [Unknown]
  - Nausea [Unknown]
  - Swelling [Unknown]
  - Back pain [Unknown]
  - Bone pain [Unknown]
  - Hypertension [Unknown]
  - Heart rate increased [Unknown]
  - Sinusitis [Unknown]
  - Somnolence [Unknown]
  - Depression [Unknown]
  - Decreased appetite [Unknown]
  - Gingival bleeding [Unknown]
  - Contusion [Unknown]
  - Alopecia [Unknown]
  - Tongue discolouration [Unknown]

NARRATIVE: CASE EVENT DATE: 20210914
